FAERS Safety Report 16074668 (Version 1)
Quarter: 2019Q1

REPORT INFORMATION
  Report Type: Spontaneous
  Country: IT (occurrence: IT)
  Receive Date: 20190314
  Receipt Date: 20190314
  Transmission Date: 20190418
  Serious: Yes (Death, Hospitalization, Other)
  Sender: FDA-Public Use
  Company Number: IT-BIODELIVERY SCIENCES INTERNATIONAL-2017BDSI0287

PATIENT
  Age: 82 Year
  Sex: Female

DRUGS (11)
  1. FENTANYL. [Suspect]
     Active Substance: FENTANYL
     Route: 062
  2. LEVOFLOXACIN. [Suspect]
     Active Substance: LEVOFLOXACIN
     Indication: STAPHYLOCOCCAL SKIN INFECTION
     Route: 048
     Dates: start: 20150522
  3. RIFAMPICIN [Suspect]
     Active Substance: RIFAMPIN
     Indication: STAPHYLOCOCCAL INFECTION
     Route: 042
     Dates: start: 2015
  4. LEVOFLOXACIN. [Suspect]
     Active Substance: LEVOFLOXACIN
     Indication: STAPHYLOCOCCAL INFECTION
     Route: 048
     Dates: start: 20150521, end: 20150521
  5. RIFAMPICIN [Suspect]
     Active Substance: RIFAMPIN
     Indication: STAPHYLOCOCCAL SKIN INFECTION
  6. FENTANYL. [Suspect]
     Active Substance: FENTANYL
     Indication: ISCHAEMIC LIMB PAIN
     Route: 062
     Dates: start: 20150602, end: 20150602
  7. FENTANYL. [Suspect]
     Active Substance: FENTANYL
     Route: 062
     Dates: start: 20150521, end: 20150528
  8. FENTANYL. [Suspect]
     Active Substance: FENTANYL
     Route: 062
  9. VANCOMYCIN [Concomitant]
     Active Substance: VANCOMYCIN
     Indication: STAPHYLOCOCCAL INFECTION
     Route: 042
  10. VANCOMYCIN [Concomitant]
     Active Substance: VANCOMYCIN
     Route: 061
  11. FENTANYL. [Suspect]
     Active Substance: FENTANYL
     Indication: PROCEDURAL PAIN
     Route: 062
     Dates: start: 20150528, end: 20150602

REACTIONS (20)
  - Status epilepticus [Recovered/Resolved]
  - Somnolence [Recovered/Resolved]
  - Sepsis [Fatal]
  - Therapy naive [Unknown]
  - Generalised non-convulsive epilepsy [Fatal]
  - Drug interaction [Unknown]
  - Hallucination [Unknown]
  - Miosis [Unknown]
  - Overdose [Unknown]
  - Prescribed overdose [Fatal]
  - Labelled drug-drug interaction medication error [Unknown]
  - Sopor [Recovered/Resolved]
  - Toxicity to various agents [Unknown]
  - Product use in unapproved indication [Unknown]
  - Off label use [Unknown]
  - Tremor [Unknown]
  - Altered state of consciousness [Recovering/Resolving]
  - Depressed level of consciousness [Recovering/Resolving]
  - Drug ineffective [Unknown]
  - Pyrexia [Fatal]

NARRATIVE: CASE EVENT DATE: 2015
